FAERS Safety Report 14259252 (Version 5)
Quarter: 2018Q3

REPORT INFORMATION
  Report Type: Report from Study
  Country: US (occurrence: US)
  Receive Date: 20171207
  Receipt Date: 20180910
  Transmission Date: 20181010
  Serious: Yes (Hospitalization)
  Sender: FDA-Public Use
  Company Number: US-B.I. PHARMACEUTICALS,INC./RIDGEFIELD-2017-BI-057471

PATIENT
  Age: 76 Year
  Sex: Male

DRUGS (1)
  1. OFEV [Suspect]
     Active Substance: NINTEDANIB
     Indication: IDIOPATHIC PULMONARY FIBROSIS
     Route: 048
     Dates: start: 20170901, end: 20171118

REACTIONS (21)
  - Abdominal pain [Unknown]
  - Productive cough [Recovering/Resolving]
  - Oxygen saturation decreased [Unknown]
  - Constipation [Recovered/Resolved]
  - Dyspnoea [Recovering/Resolving]
  - Dyspepsia [Unknown]
  - Dyspnoea exertional [Unknown]
  - Gastric haemorrhage [Recovered/Resolved]
  - Balance disorder [Unknown]
  - Full blood count decreased [Unknown]
  - Cough [Unknown]
  - Syncope [Recovered/Resolved]
  - Diarrhoea [Not Recovered/Not Resolved]
  - Off label use [Unknown]
  - Diarrhoea [Recovered/Resolved]
  - Haemorrhage [Unknown]
  - Muscle spasms [Unknown]
  - Abdominal distension [Unknown]
  - Musculoskeletal discomfort [Unknown]
  - Abdominal pain upper [Unknown]
  - Gait disturbance [Unknown]

NARRATIVE: CASE EVENT DATE: 20170901
